FAERS Safety Report 5712131-4 (Version None)
Quarter: 2008Q2

REPORT INFORMATION
  Report Type: 
  Country: None (occurrence: None)
  Receive Date: 20080418
  Receipt Date: 20080402
  Transmission Date: 20081010
  Serious: Yes (Hospitalization, Other)
  Sender: FDA-Public Use
  Company Number: 2008SP006572

PATIENT
  Age: 13 Year
  Sex: Male

DRUGS (1)
  1. CORICIDIN HBP COUGH + COLD (CHLORPHENIRAMINE MALEATE/DEXTROMETHORPHAN [Suspect]
     Indication: DRUG USE FOR UNKNOWN INDICATION
     Dosage: 32 MG PO
     Route: 048

REACTIONS (2)
  - INCORRECT DOSE ADMINISTERED [None]
  - SHOPLIFTING [None]
